FAERS Safety Report 8326903-3 (Version None)
Quarter: 2012Q2

REPORT INFORMATION
  Report Type: 
  Country: None (occurrence: None)
  Receive Date: 20120501
  Receipt Date: 20120418
  Transmission Date: 20120825
  Serious: Yes (Hospitalization)
  Sender: FDA-Public Use
  Company Number: TN-MYLANLABS-2012S1008280

PATIENT
  Age: 45 Year
  Sex: Female

DRUGS (3)
  1. NOMEGESTROL [Concomitant]
     Indication: CONTRACEPTION
     Route: 065
     Dates: start: 20100501, end: 20100907
  2. NAPROXEN [Suspect]
     Indication: ARTHRALGIA
     Route: 065
     Dates: start: 20000101, end: 20100901
  3. NAPROXEN [Suspect]
     Dosage: TWICE DAILY
     Route: 065
     Dates: start: 20100901, end: 20101020

REACTIONS (1)
  - LEUKOCYTOCLASTIC VASCULITIS [None]
